FAERS Safety Report 8502692-4 (Version None)
Quarter: 2012Q3

REPORT INFORMATION
  Report Type: 
  Country: None (occurrence: None)
  Receive Date: 20120706
  Receipt Date: 20120706
  Transmission Date: 20120928
  Serious: No
  Sender: FDA-Public Use
  Company Number: None

PATIENT
  Age: 56 Year
  Sex: Female
  Weight: 56.6996 kg

DRUGS (1)
  1. ALLI (ORLISTAT) [Suspect]
     Indication: WEIGHT DECREASED
     Dosage: 1 3 TIMES A DAY PO
     Route: 048
     Dates: start: 20120627, end: 20120705

REACTIONS (3)
  - NAUSEA [None]
  - PRODUCT QUALITY ISSUE [None]
  - NO THERAPEUTIC RESPONSE [None]
